FAERS Safety Report 5828034-0 (Version None)
Quarter: 2008Q3

REPORT INFORMATION
  Report Type: 
  Country: None (occurrence: None)
  Receive Date: 20080730
  Receipt Date: 20070808
  Transmission Date: 20090109
  Serious: No
  Sender: FDA-Public Use
  Company Number: A0669545A

PATIENT
  Age: 4 Month
  Sex: Male

DRUGS (1)
  1. RANITIDINE HCL [Suspect]
     Indication: ILL-DEFINED DISORDER
     Dates: start: 20070101

REACTIONS (2)
  - DRUG INEFFECTIVE [None]
  - RASH [None]
